FAERS Safety Report 9119277 (Version 1)
Quarter: 2013Q1

REPORT INFORMATION
  Report Type: Spontaneous
  Country: FR (occurrence: FR)
  Receive Date: 20130207
  Receipt Date: 20130207
  Transmission Date: 20140127
  Serious: Yes (Life-Threatening)
  Sender: FDA-Public Use
  Company Number: FR-JNJFOC-20130203034

PATIENT
  Age: 60 Year
  Sex: Male

DRUGS (2)
  1. XARELTO [Suspect]
     Indication: CEREBROVASCULAR ACCIDENT PROPHYLAXIS
     Route: 048
     Dates: start: 20121028, end: 20121205
  2. XARELTO [Suspect]
     Indication: ATRIAL FIBRILLATION
     Route: 048
     Dates: start: 20121028, end: 20121205

REACTIONS (3)
  - Acute respiratory distress syndrome [Not Recovered/Not Resolved]
  - Pericardial haemorrhage [Not Recovered/Not Resolved]
  - Cardiac tamponade [Not Recovered/Not Resolved]
